FAERS Safety Report 5815508-1 (Version None)
Quarter: 2008Q3

REPORT INFORMATION
  Report Type: 
  Country: None (occurrence: None)
  Receive Date: 20080718
  Receipt Date: 20080703
  Transmission Date: 20090109
  Serious: Yes (Hospitalization, Other)
  Sender: FDA-Public Use
  Company Number: FR-GENENTECH-262806

PATIENT
  Sex: Female
  Weight: 42 kg

DRUGS (2)
  1. XOLAIR [Suspect]
     Indication: ASTHMA
     Dosage: 225 MG, Q2W
     Dates: start: 20070522
  2. XOLAIR [Suspect]
     Dosage: 150 MG, Q2W
     Dates: start: 20080101, end: 20080212

REACTIONS (3)
  - ASTHMA [None]
  - INFLUENZA [None]
  - PHARYNGITIS [None]
